FAERS Safety Report 16877755 (Version 1)
Quarter: 2019Q4

REPORT INFORMATION
  Report Type: Spontaneous
  Country: JP (occurrence: JP)
  Receive Date: 20191002
  Receipt Date: 20191002
  Transmission Date: 20200122
  Serious: Yes (Other)
  Sender: FDA-Public Use
  Company Number: JP-FRESENIUS KABI-FK201910732

PATIENT
  Age: 63 Year
  Sex: Male

DRUGS (4)
  1. VANCOMYCIN (MANUFACTURER UNKNOWN) [Suspect]
     Active Substance: VANCOMYCIN
     Indication: MENINGITIS BACTERIAL
     Route: 042
  2. VANCOMYCIN (MANUFACTURER UNKNOWN) [Suspect]
     Active Substance: VANCOMYCIN
     Route: 042
  3. DEXAMETHASONE. [Concomitant]
     Active Substance: DEXAMETHASONE
     Indication: MENINGITIS BACTERIAL
     Route: 042
  4. MEROPENEM. [Concomitant]
     Active Substance: MEROPENEM
     Indication: MENINGITIS BACTERIAL
     Route: 042

REACTIONS (1)
  - Drug-induced liver injury [Unknown]
